FAERS Safety Report 7319504-7 (Version None)
Quarter: 2011Q1

REPORT INFORMATION
  Report Type: 
  Country: None (occurrence: None)
  Receive Date: 20110228
  Receipt Date: 20100520
  Transmission Date: 20110831
  Serious: No
  Sender: FDA-Public Use
  Company Number: A0856108A

PATIENT
  Age: 29 Year
  Sex: Female
  Weight: 65.9 kg

DRUGS (4)
  1. LAMICTAL [Suspect]
     Indication: BIPOLAR DISORDER
     Dosage: 200MG PER DAY
     Route: 048
     Dates: start: 20091201
  2. ABILIFY [Concomitant]
     Dosage: 30MG AT NIGHT
     Route: 048
     Dates: start: 20091203
  3. KLONOPIN [Concomitant]
     Dosage: .5MG TWICE PER DAY
     Route: 048
     Dates: start: 20100405
  4. ZOLOFT [Concomitant]
     Indication: BIPOLAR DISORDER
     Dosage: 100MG AT NIGHT
     Route: 048
     Dates: start: 20100405

REACTIONS (2)
  - ANXIETY [None]
  - RASH [None]
